FAERS Safety Report 14281660 (Version 12)
Quarter: 2018Q3

REPORT INFORMATION
  Report Type: Spontaneous
  Country: CA (occurrence: CA)
  Receive Date: 20171213
  Receipt Date: 20180806
  Transmission Date: 20181010
  Serious: Yes (Other)
  Sender: FDA-Public Use
  Company Number: CA-CELLTRION INC.-2017CA011592

PATIENT

DRUGS (11)
  1. INFLECTRA [Suspect]
     Active Substance: INFLIXIMAB-DYYB
     Dosage: 400 MG, CYCLIC THEN EVERY  4 WEEKS
     Route: 042
     Dates: start: 20180604
  2. INFLECTRA [Suspect]
     Active Substance: INFLIXIMAB-DYYB
     Dosage: 400 MG, CYCLIC (AT 0,2,6 WEEKS THEN EVERY 8 WEEKS)
     Route: 042
     Dates: start: 20180703
  3. INFLECTRA [Suspect]
     Active Substance: INFLIXIMAB-DYYB
     Dosage: 400 MG, CYCLIC THEN EVERY  4 WEEKS
     Route: 042
     Dates: start: 20180423
  4. INFLECTRA [Suspect]
     Active Substance: INFLIXIMAB-DYYB
     Dosage: 400 MG, CYCLIC THEN EVERY  4 WEEKS
     Route: 042
     Dates: start: 20180124
  5. SERTRALINE [Concomitant]
     Active Substance: SERTRALINE HYDROCHLORIDE
     Dosage: 50 MG, UNK
     Route: 065
  6. INFLECTRA [Suspect]
     Active Substance: INFLIXIMAB-DYYB
     Dosage: 400 MG, CYCLIC (AT 0,2,6WEEKS THEN EVERY 8WEEKS
     Route: 042
     Dates: start: 20171213
  7. INFLECTRA [Suspect]
     Active Substance: INFLIXIMAB-DYYB
     Indication: CROHN^S DISEASE
     Dosage: 400 MG, CYCLIC (AT 0,2,6WEEKS THEN EVERY 8WEEKS
     Route: 042
     Dates: start: 20170822
  8. INFLECTRA [Suspect]
     Active Substance: INFLIXIMAB-DYYB
     Dosage: 400 MG, CYCLIC THEN EVERY  4 WEEKS
     Route: 042
     Dates: start: 20180222
  9. INFLECTRA [Suspect]
     Active Substance: INFLIXIMAB-DYYB
     Dosage: 400 MG, CYCLIC (EVERY 6 WEEKS)
     Route: 042
  10. INFLECTRA [Suspect]
     Active Substance: INFLIXIMAB-DYYB
     Dosage: 400 MG, CYCLIC THEN EVERY  4 WEEKS
     Route: 042
     Dates: start: 20180703
  11. PREDNISONE. [Concomitant]
     Active Substance: PREDNISONE
     Dosage: 40 MG, UNK
     Route: 065

REACTIONS (13)
  - Condition aggravated [Recovered/Resolved]
  - Inappropriate schedule of drug administration [Unknown]
  - Flatulence [Unknown]
  - Abdominal pain [Unknown]
  - Arthralgia [Unknown]
  - Abdominal distension [Unknown]
  - Pain in extremity [Unknown]
  - Drug level decreased [Unknown]
  - Joint stiffness [Unknown]
  - Faeces soft [Unknown]
  - Musculoskeletal stiffness [Unknown]
  - Product use issue [Unknown]
  - Abdominal discomfort [Unknown]

NARRATIVE: CASE EVENT DATE: 2017
